FAERS Safety Report 23944956 (Version 2)
Quarter: 2024Q2

REPORT INFORMATION
  Report Type: Spontaneous
  Country: AU (occurrence: AU)
  Receive Date: 20240606
  Receipt Date: 20240617
  Transmission Date: 20240716
  Serious: Yes (Other)
  Sender: FDA-Public Use
  Company Number: AU-ASTELLAS-2024US014791

PATIENT
  Age: 57 Year
  Sex: Male

DRUGS (5)
  1. TERBINAFINE [Interacting]
     Active Substance: TERBINAFINE
     Indication: Product used for unknown indication
     Route: 065
  2. CEFTAZIDIME [Suspect]
     Active Substance: CEFTAZIDIME
     Indication: Product used for unknown indication
     Route: 065
  3. VANCOMYCIN [Suspect]
     Active Substance: VANCOMYCIN
     Indication: Product used for unknown indication
     Route: 065
  4. VORICONAZOLE [Interacting]
     Active Substance: VORICONAZOLE
     Indication: Product used for unknown indication
     Route: 065
  5. MYCAMINE [Interacting]
     Active Substance: MICAFUNGIN SODIUM
     Indication: Product used for unknown indication
     Dosage: [(INJECTION (PFT)]; UNKNOWN

REACTIONS (5)
  - Renal failure [Unknown]
  - Neutropenia [Unknown]
  - Disease progression [Unknown]
  - Pathogen resistance [Unknown]
  - Drug interaction [Unknown]
